FAERS Safety Report 15305537 (Version 1)
Quarter: 2018Q3

REPORT INFORMATION
  Report Type: Spontaneous
  Country: US (occurrence: US)
  Receive Date: 20180822
  Receipt Date: 20180822
  Transmission Date: 20181010
  Serious: No
  Sender: FDA-Public Use
  Company Number: US-AMGEN-USASP2018114146

PATIENT
  Age: 62 Year
  Sex: Female

DRUGS (1)
  1. ENBREL [Suspect]
     Active Substance: ETANERCEPT
     Indication: RHEUMATOID ARTHRITIS
     Dosage: 50 MG, UNK
     Route: 065
     Dates: start: 201807

REACTIONS (5)
  - Hypoaesthesia [Unknown]
  - Toothache [Unknown]
  - Injection site swelling [Unknown]
  - Injection site erythema [Unknown]
  - Paraesthesia [Unknown]

NARRATIVE: CASE EVENT DATE: 2018
